FAERS Safety Report 13276697 (Version 1)
Quarter: 2017Q1

REPORT INFORMATION
  Report Type: Spontaneous
  Country: US (occurrence: US)
  Receive Date: 20170228
  Receipt Date: 20170228
  Transmission Date: 20170428
  Serious: Yes (Hospitalization)
  Sender: FDA-Public Use
  Company Number: None

PATIENT

DRUGS (1)
  1. VANCOMYCIN (VANCOMYCIN HYDROCHLORIDE) [Suspect]
     Active Substance: VANCOMYCIN

REACTIONS (3)
  - Oesophageal mass [None]
  - Dehydration [None]
  - Dysphagia [None]

NARRATIVE: CASE EVENT DATE: 20150401
